FAERS Safety Report 20625750 (Version 1)
Quarter: 2022Q1

REPORT INFORMATION
  Report Type: Spontaneous
  Country: US (occurrence: None)
  Receive Date: 20220323
  Receipt Date: 20220323
  Transmission Date: 20220424
  Serious: No
  Sender: FDA-Public Use
  Company Number: US-ROCHE-2918016

PATIENT
  Sex: Female

DRUGS (1)
  1. ERIVEDGE [Suspect]
     Active Substance: VISMODEGIB
     Indication: Basal cell carcinoma
     Dosage: 2 WEEK ON AND THEN OFF FOR 2 WEEKS.
     Route: 048
     Dates: start: 20210729

REACTIONS (1)
  - Muscle spasms [Unknown]
